FAERS Safety Report 7417790-6 (Version None)
Quarter: 2011Q2

REPORT INFORMATION
  Report Type: 
  Country: None (occurrence: None)
  Receive Date: 20110412
  Receipt Date: 20110412
  Transmission Date: 20111010
  Serious: No
  Sender: FDA-Public Use
  Company Number: None

PATIENT
  Age: 65 Year
  Sex: Male
  Weight: 105 kg

DRUGS (2)
  1. PRASUGREL [Suspect]
     Indication: CORONARY ARTERIAL STENT INSERTION
     Dosage: 10 MG EVERY DAY PO
     Route: 048
     Dates: start: 20101030, end: 20110112
  2. ASPIRIN [Suspect]
     Dosage: 81 MG EVERY DAY PO
     Route: 048
     Dates: start: 20101224, end: 20110112

REACTIONS (4)
  - FATIGUE [None]
  - EPISTAXIS [None]
  - CONTUSION [None]
  - HAEMORRHAGE [None]
